FAERS Safety Report 13151030 (Version 1)
Quarter: 2017Q1

REPORT INFORMATION
  Report Type: Spontaneous
  Country: US (occurrence: US)
  Receive Date: 20170119
  Receipt Date: 20170119
  Transmission Date: 20170428
  Serious: Yes (Life-Threatening, Hospitalization, Other)
  Sender: FDA-Public Use
  Company Number: None

PATIENT
  Age: 88 Year
  Sex: Male
  Weight: 63 kg

DRUGS (1)
  1. HALOPERIDOL. [Suspect]
     Active Substance: HALOPERIDOL
     Route: 040
     Dates: start: 20170117, end: 20170118

REACTIONS (4)
  - Pyrexia [None]
  - Mental status changes [None]
  - Neuroleptic malignant syndrome [None]
  - Tremor [None]

NARRATIVE: CASE EVENT DATE: 20170118
